FAERS Safety Report 11913604 (Version 3)
Quarter: 2016Q1

REPORT INFORMATION
  Report Type: Spontaneous
  Country: US (occurrence: US)
  Receive Date: 20160113
  Receipt Date: 20160304
  Transmission Date: 20160526
  Serious: Yes (Other)
  Sender: FDA-Public Use
  Company Number: US-PFIZER INC-2015477635

PATIENT
  Age: 49 Year
  Sex: Female
  Weight: 116 kg

DRUGS (15)
  1. LYRICA [Suspect]
     Active Substance: PREGABALIN
     Indication: BACK PAIN
     Dosage: 200 MG, 2X/DAY
  2. ZANAFLEX [Concomitant]
     Active Substance: TIZANIDINE HYDROCHLORIDE
     Dosage: UNK UNK, 2X/DAY
  3. ZOCOR [Concomitant]
     Active Substance: SIMVASTATIN
     Indication: BLOOD CHOLESTEROL
     Dosage: 20 MG, 1X/DAY (AT NIGHT )
     Route: 048
  4. ZANAFLEX [Concomitant]
     Active Substance: TIZANIDINE HYDROCHLORIDE
     Indication: MUSCLE SPASMS
     Dosage: 4 MG, AS NEEDED (EVERY 8 HOURS )
  5. OMEPRAZOLE. [Concomitant]
     Active Substance: OMEPRAZOLE
     Indication: ABDOMINAL DISCOMFORT
     Dosage: 2 DF, 1X/DAY (1 CAPSULE IN THE MORNING AND ONE CAPSULE AT NIGHT)
  6. TOPAMAX [Concomitant]
     Active Substance: TOPIRAMATE
     Indication: MIGRAINE
     Dosage: 150 MG, 1X/DAY (50 MG TABLET IN MORNING AND 100 MG IN THE EVENING)
  7. PAXIL [Concomitant]
     Active Substance: PAROXETINE HYDROCHLORIDE
     Indication: DEPRESSION
     Dosage: 80 MG, DAILY (EVENING)
     Dates: start: 1996
  8. LISINOPRIL. [Concomitant]
     Active Substance: LISINOPRIL
     Indication: CARDIAC DISORDER
     Dosage: 5 MG, DAILY (AT NIGHT)
  9. LYRICA [Suspect]
     Active Substance: PREGABALIN
     Indication: PAIN IN EXTREMITY
  10. KEPPRA [Concomitant]
     Active Substance: LEVETIRACETAM
     Indication: SEIZURE
     Dosage: 500 MG, 2X/DAY (EVERY 12 HOURS)
     Route: 048
     Dates: start: 201410
  11. ACCOLATE [Concomitant]
     Active Substance: ZAFIRLUKAST
     Indication: HYPERSENSITIVITY
     Dosage: 20 MG, 2X/DAY
     Route: 048
  12. COREG [Concomitant]
     Active Substance: CARVEDILOL
     Indication: CARDIAC DISORDER
     Dosage: 6.25 MG, 2X/DAY
     Route: 048
  13. OMEPRAZOLE. [Concomitant]
     Active Substance: OMEPRAZOLE
     Indication: GASTROOESOPHAGEAL REFLUX DISEASE
  14. LYRICA [Suspect]
     Active Substance: PREGABALIN
     Indication: NEUROPATHY PERIPHERAL
     Dosage: 200 MG, 2X/DAY (EVERY 12 HOURS)
     Route: 048
     Dates: start: 200608, end: 20160220
  15. XANAX [Concomitant]
     Active Substance: ALPRAZOLAM
     Indication: ANXIETY
     Dosage: (1/2 TO 1 TAB UP TO 3 TIMES DAILY FOR ANXIETY AND 2 TABS AT NIGHT), 3X/DAY
     Dates: start: 200608

REACTIONS (11)
  - Hypoaesthesia [Unknown]
  - Malaise [Not Recovered/Not Resolved]
  - Drug ineffective for unapproved indication [Unknown]
  - Condition aggravated [Unknown]
  - Weight decreased [Unknown]
  - Drug dose omission [Unknown]
  - Back injury [Unknown]
  - Memory impairment [Unknown]
  - Condition aggravated [Unknown]
  - Back pain [Unknown]
  - Pain [Not Recovered/Not Resolved]

NARRATIVE: CASE EVENT DATE: 200705
